FAERS Safety Report 11703965 (Version 1)
Quarter: 2015Q4

REPORT INFORMATION
  Report Type: Spontaneous
  Country: US (occurrence: None)
  Receive Date: 20151105
  Receipt Date: 20151105
  Transmission Date: 20160304
  Serious: Yes (Life-Threatening, Hospitalization, Disabling)
  Sender: FDA-Public Use
  Company Number: None

PATIENT
  Age: 65 Year
  Sex: Male
  Weight: 63.5 kg

DRUGS (6)
  1. DEXILANT [Concomitant]
     Active Substance: DEXLANSOPRAZOLE
  2. TRAZODONE [Concomitant]
     Active Substance: TRAZODONE HYDROCHLORIDE
  3. DEPAKOTE [Concomitant]
     Active Substance: DIVALPROEX SODIUM
  4. CIPROFLOXACIN 400 MG/200 ML [Suspect]
     Active Substance: CIPROFLOXACIN
     Indication: APPENDICITIS
     Dosage: 400 MG/200 ML DSW DOSE 400 MG
     Route: 042
  5. DIVALPROEX SOD ER [Concomitant]
     Active Substance: DIVALPROEX SODIUM
  6. CLONAZEPAM. [Concomitant]
     Active Substance: CLONAZEPAM

REACTIONS (2)
  - Seizure [None]
  - Cognitive disorder [None]

NARRATIVE: CASE EVENT DATE: 20150907
